FAERS Safety Report 5669329-3 (Version None)
Quarter: 2008Q1

REPORT INFORMATION
  Report Type: 
  Country: None (occurrence: None)
  Receive Date: 20080317
  Receipt Date: 20080312
  Transmission Date: 20080703
  Serious: Yes (Death, Hospitalization)
  Sender: FDA-Public Use
  Company Number: PHHO2007CA16869

PATIENT
  Age: 57 Year
  Sex: Male
  Weight: 106 kg

DRUGS (1)
  1. MYFORTIC [Suspect]
     Indication: LUNG TRANSPLANT
     Dosage: 2340 MG/DAILY
     Route: 048
     Dates: start: 20061025

REACTIONS (6)
  - ABDOMINAL DISTENSION [None]
  - ABDOMINAL PAIN [None]
  - GASTRIC NEOPLASM [None]
  - NAUSEA [None]
  - VOMITING [None]
  - WEIGHT DECREASED [None]
